FAERS Safety Report 13896526 (Version 1)
Quarter: 2017Q3

REPORT INFORMATION
  Report Type: Spontaneous
  Country: US (occurrence: US)
  Receive Date: 20170822
  Receipt Date: 20170822
  Transmission Date: 20171127
  Serious: Yes (Other)
  Sender: FDA-Public Use
  Company Number: None

PATIENT
  Age: 46 Year
  Sex: Female
  Weight: 107.9 kg

DRUGS (3)
  1. MORPHINE [Concomitant]
     Active Substance: MORPHINE
  2. IOPAMIDOL [Suspect]
     Active Substance: IOPAMIDOL
     Indication: ABDOMINAL PAIN
     Dates: start: 20170821, end: 20170821
  3. ZOFRAN [Concomitant]
     Active Substance: ONDANSETRON HYDROCHLORIDE

REACTIONS (3)
  - Urticaria [None]
  - Pruritus generalised [None]
  - Contrast media reaction [None]

NARRATIVE: CASE EVENT DATE: 20170821
